FAERS Safety Report 12294463 (Version 1)
Quarter: 2016Q2

REPORT INFORMATION
  Report Type: Spontaneous
  Country: None (occurrence: None)
  Receive Date: 20160421
  Receipt Date: 20160421
  Transmission Date: 20160815
  Serious: Yes (Hospitalization)
  Sender: FDA-Public Use
  Company Number: None

PATIENT
  Age: 87 Year
  Sex: Female
  Weight: 59 kg

DRUGS (1)
  1. APIXABAN, 2.5 MG [Suspect]
     Active Substance: APIXABAN

REACTIONS (4)
  - Asthenia [None]
  - Presyncope [None]
  - Gastrointestinal haemorrhage [None]
  - Dizziness [None]

NARRATIVE: CASE EVENT DATE: 20151113
